FAERS Safety Report 5059066-0 (Version None)
Quarter: 2006Q3

REPORT INFORMATION
  Report Type: 
  Country: None (occurrence: None)
  Receive Date: 20060719
  Receipt Date: 20060706
  Transmission Date: 20061208
  Serious: Yes (Hospitalization)
  Sender: FDA-Public Use
  Company Number: 14361

PATIENT
  Age: 67 Year
  Sex: Male
  Weight: 113.3993 kg

DRUGS (19)
  1. DEXAMETHASONE TAB [Suspect]
     Indication: ENDOCRINE PANCREATIC DISORDER
     Dosage: 20 MG PER_CYCLE IV
     Route: 042
     Dates: start: 20060411, end: 20060425
  2. DEXAMETHASONE TAB [Suspect]
     Indication: PANCREATIC NEOPLASM
     Dosage: 20 MG PER_CYCLE IV
     Route: 042
     Dates: start: 20060411, end: 20060425
  3. FLUOROURACIL [Suspect]
     Indication: ENDOCRINE PANCREATIC DISORDER
     Dosage: 950 MG PER_CYCLE IV
     Route: 042
     Dates: start: 20060425, end: 20060425
  4. FLUOROURACIL [Suspect]
     Indication: PANCREATIC NEOPLASM
     Dosage: 950 MG PER_CYCLE IV
     Route: 042
     Dates: start: 20060425, end: 20060425
  5. GRANISETRON  HCL [Suspect]
     Indication: ENDOCRINE PANCREATIC DISORDER
     Dosage: 1200 MICROGRAM PER_CYCLE IV
     Route: 042
     Dates: start: 20060411, end: 20060425
  6. GRANISETRON  HCL [Suspect]
     Indication: PANCREATIC NEOPLASM
     Dosage: 1200 MICROGRAM PER_CYCLE IV
     Route: 042
     Dates: start: 20060411, end: 20060425
  7. LEUCOVORIN CALCIUM [Suspect]
     Indication: ENDOCRINE PANCREATIC DISORDER
     Dosage: 475 MG PER_CYCLE IV
     Route: 042
     Dates: start: 20060425, end: 20060425
  8. LEUCOVORIN CALCIUM [Suspect]
     Indication: PANCREATIC NEOPLASM
     Dosage: 475 MG PER_CYCLE IV
     Route: 042
     Dates: start: 20060425, end: 20060425
  9. OXALIPLATIN [Suspect]
     Indication: ENDOCRINE PANCREATIC DISORDER
     Dosage: 200 MG PER_CYCLE IV
     Route: 042
     Dates: start: 20060425, end: 20060425
  10. OXALIPLATIN [Suspect]
     Indication: PANCREATIC NEOPLASM
     Dosage: 200 MG PER_CYCLE IV
     Route: 042
     Dates: start: 20060425, end: 20060425
  11. AVASTIN [Suspect]
     Indication: ENDOCRINE PANCREATIC DISORDER
     Dosage: 570 MG PER_CYCLE IV
     Route: 042
     Dates: start: 20060425, end: 20060425
  12. AVASTIN [Suspect]
     Indication: PANCREATIC NEOPLASM
     Dosage: 570 MG PER_CYCLE IV
     Route: 042
     Dates: start: 20060425, end: 20060425
  13. LORAZEPAM [Suspect]
     Indication: ENDOCRINE PANCREATIC DISORDER
     Dosage: 1 MG PER_CYCLE PO
     Route: 048
     Dates: start: 20060411, end: 20060425
  14. LORAZEPAM [Suspect]
     Indication: PANCREATIC NEOPLASM
     Dosage: 1 MG PER_CYCLE PO
     Route: 048
     Dates: start: 20060411, end: 20060425
  15. PROTONIX [Concomitant]
  16. SANDOSTATIN [Concomitant]
  17. SANDOSTATIN LAR [Concomitant]
  18. D10 [Concomitant]
  19. ACETYLSALICYLIC ACID SRT [Concomitant]

REACTIONS (14)
  - ABDOMINAL PAIN UPPER [None]
  - ASPARTATE AMINOTRANSFERASE INCREASED [None]
  - BACTERAEMIA [None]
  - CHILLS [None]
  - DEHYDRATION [None]
  - DIARRHOEA [None]
  - FATIGUE [None]
  - FLATULENCE [None]
  - HYPOAESTHESIA [None]
  - HYPOTENSION [None]
  - PAIN IN EXTREMITY [None]
  - PARAESTHESIA [None]
  - STOMATITIS [None]
  - VOMITING [None]
